FAERS Safety Report 8438825-8 (Version None)
Quarter: 2012Q2

REPORT INFORMATION
  Report Type: 
  Country: None (occurrence: None)
  Receive Date: 20120606
  Receipt Date: 20120530
  Transmission Date: 20120825
  Serious: Yes (Other)
  Sender: FDA-Public Use
  Company Number: 2012SP029478

PATIENT
  Age: 34 Year
  Sex: Female
  Weight: 66 kg

DRUGS (3)
  1. NEXPLANON [Suspect]
     Indication: CONTRACEPTION
     Dosage: 68 MG;   ;SBDE
     Route: 059
     Dates: start: 20120308, end: 20120512
  2. DOXYCYCLINE [Concomitant]
  3. LIDOCAINE [Concomitant]

REACTIONS (2)
  - SKIN REACTION [None]
  - PRURITUS [None]
